FAERS Safety Report 5789340-1 (Version None)
Quarter: 2008Q2

REPORT INFORMATION
  Report Type: 
  Country: None (occurrence: None)
  Receive Date: 20080626
  Receipt Date: 20080617
  Transmission Date: 20081010
  Serious: Yes (Disabling, Other)
  Sender: FDA-Public Use
  Company Number: US-MERCK-0705USA03622

PATIENT
  Age: 58 Year
  Sex: Female
  Weight: 48 kg

DRUGS (4)
  1. FOSAMAX [Suspect]
     Indication: OSTEOPOROSIS
     Route: 048
     Dates: start: 20000901, end: 20021105
  2. ACYCLOVIR [Concomitant]
     Indication: ORAL HERPES
     Route: 065
     Dates: start: 20000101
  3. CELEBREX [Concomitant]
     Route: 065
     Dates: start: 20021120
  4. ACTONEL [Suspect]
     Indication: OSTEOPOROSIS
     Route: 048
     Dates: start: 20021120, end: 20050825

REACTIONS (15)
  - ANXIETY [None]
  - ARTHROPATHY [None]
  - BLOOD PRESSURE INCREASED [None]
  - DEPRESSION [None]
  - GASTROINTESTINAL HAEMORRHAGE [None]
  - GINGIVAL DISORDER [None]
  - HEADACHE [None]
  - HEPATITIS ALCOHOLIC [None]
  - INSOMNIA [None]
  - NECK PAIN [None]
  - OCCULT BLOOD POSITIVE [None]
  - OSTEOARTHRITIS [None]
  - OSTEOMYELITIS [None]
  - OSTEONECROSIS [None]
  - PERIODONTAL DISEASE [None]
